FAERS Safety Report 19509508 (Version 2)
Quarter: 2021Q3

REPORT INFORMATION
  Report Type: Spontaneous
  Country: MY (occurrence: MY)
  Receive Date: 20210709
  Receipt Date: 20210908
  Transmission Date: 20211014
  Serious: Yes (Other)
  Sender: FDA-Public Use
  Company Number: MY-CIPLA LTD.-2021MY04740

PATIENT

DRUGS (1)
  1. EFAVIR [Suspect]
     Active Substance: EFAVIRENZ
     Indication: ANTIRETROVIRAL THERAPY
     Dosage: 600 MILLIGRAM, QD
     Route: 048

REACTIONS (4)
  - Hyperhidrosis [Recovering/Resolving]
  - Delirium [Recovering/Resolving]
  - Hallucination, auditory [Recovering/Resolving]
  - Respiratory rate increased [Recovering/Resolving]
